FAERS Safety Report 8018061-X (Version None)
Quarter: 2012Q1

REPORT INFORMATION
  Report Type: 
  Country: None (occurrence: None)
  Receive Date: 20120103
  Receipt Date: 20111222
  Transmission Date: 20120608
  Serious: Yes (Other)
  Sender: FDA-Public Use
  Company Number: GB-BAYER-2011-122994

PATIENT
  Sex: Female

DRUGS (1)
  1. MIRENA [Suspect]
     Dosage: UNK
     Dates: start: 20110701

REACTIONS (6)
  - NECK PAIN [None]
  - ABDOMINAL PAIN UPPER [None]
  - MEDICAL DEVICE DISCOMFORT [None]
  - URINARY TRACT INFECTION [None]
  - GENITAL HAEMORRHAGE [None]
  - AMENORRHOEA [None]
